FAERS Safety Report 7273393-8 (Version None)
Quarter: 2011Q1

REPORT INFORMATION
  Report Type: 
  Country: None (occurrence: None)
  Receive Date: 20110203
  Receipt Date: 20100901
  Transmission Date: 20110831
  Serious: No
  Sender: FDA-Public Use
  Company Number: US-ABBOTT-10P-163-0669019-00

PATIENT
  Sex: Female
  Weight: 95.34 kg

DRUGS (11)
  1. LITHIUM CABONATE ER [Concomitant]
     Indication: BIPOLAR DISORDER
  2. SYNTHROID [Suspect]
     Indication: HYPOTHYROIDISM
     Dates: start: 20100101
  3. TRICOR [Suspect]
     Indication: BLOOD CHOLESTEROL INCREASED
     Dates: start: 20100101
  4. ALPRAZOLAM [Concomitant]
     Indication: ANXIETY
     Dosage: 2-3 TIMES A DAY
  5. EFFEXOR [Concomitant]
     Indication: BIPOLAR DISORDER
     Dates: start: 20100901
  6. DIOVAN HCT [Concomitant]
     Indication: HYPERTENSION
     Dosage: 80/12.5 MG
  7. ACTOS [Concomitant]
     Indication: DIABETES MELLITUS
  8. GEODON [Concomitant]
     Indication: ANXIETY
     Dates: start: 20100826
  9. SYNTHROID [Suspect]
     Dates: start: 20090201, end: 20100101
  10. TRICOR [Suspect]
     Indication: BLOOD TRIGLYCERIDES
     Dosage: UNSURE OF DOSE
     Dates: start: 20080101, end: 20100101
  11. LAMOTRIGINE [Concomitant]
     Indication: BIPOLAR DISORDER

REACTIONS (2)
  - MANIA [None]
  - FEELING ABNORMAL [None]
